FAERS Safety Report 10103506 (Version 1)
Quarter: 2014Q2

REPORT INFORMATION
  Report Type: Spontaneous
  Country: US (occurrence: US)
  Receive Date: 20140424
  Receipt Date: 20140424
  Transmission Date: 20141212
  Serious: Yes (Other)
  Sender: FDA-Public Use
  Company Number: US-BRISTOL-MYERS SQUIBB COMPANY-20472643

PATIENT
  Age: 79 Year
  Sex: Male
  Weight: 75.7 kg

DRUGS (9)
  1. ELIQUIS [Suspect]
  2. ASPIRIN [Concomitant]
  3. LOTRISONE [Concomitant]
     Dosage: LOTRISONE CREAM
  4. ARTIFICIAL TEARS [Concomitant]
  5. LASIX [Concomitant]
  6. NORCO [Concomitant]
     Dosage: 1 DF:5/325 TIMES DAILY AS NEEDED
  7. ZESTRIL [Concomitant]
  8. NADOLOL [Concomitant]
  9. NITROGLYCERIN SL [Concomitant]

REACTIONS (1)
  - Cerebral haemorrhage [Unknown]
